FAERS Safety Report 21224110 (Version 2)
Quarter: 2022Q3

REPORT INFORMATION
  Report Type: Spontaneous
  Country: TW (occurrence: TW)
  Receive Date: 20220817
  Receipt Date: 20220825
  Transmission Date: 20221027
  Serious: Yes (Death, Life-Threatening, Hospitalization, Other)
  Sender: FDA-Public Use
  Company Number: TW-MLMSERVICE-20220805-3713562-1

PATIENT
  Age: 57 Year
  Sex: Female

DRUGS (6)
  1. SIROLIMUS [Suspect]
     Active Substance: SIROLIMUS
     Indication: Immunosuppressant drug therapy
     Dosage: UNK
  2. TACROLIMUS [Suspect]
     Active Substance: TACROLIMUS
     Indication: Immunosuppressant drug therapy
     Dosage: TAPERED
  3. TACROLIMUS [Suspect]
     Active Substance: TACROLIMUS
     Dosage: 2 MG, 1X/DAY
  4. MYCOPHENOLATE SODIUM [Suspect]
     Active Substance: MYCOPHENOLATE SODIUM
     Indication: Immunosuppressant drug therapy
     Dosage: 360 MG, 1X/DAY
  5. EVEROLIMUS [Suspect]
     Active Substance: EVEROLIMUS
     Indication: Immunosuppressant drug therapy
     Dosage: 0.5 MG, 1X/DAY
  6. EVEROLIMUS [Suspect]
     Active Substance: EVEROLIMUS
     Dosage: 1 MG, 1X/DAY

REACTIONS (4)
  - Multiple organ dysfunction syndrome [Fatal]
  - Haemoperitoneum [Unknown]
  - Hepatic angiosarcoma [Unknown]
  - Mouth ulceration [Unknown]
